FAERS Safety Report 7411741-6 (Version None)
Quarter: 2011Q2

REPORT INFORMATION
  Report Type: 
  Country: None (occurrence: None)
  Receive Date: 20110413
  Receipt Date: 20110404
  Transmission Date: 20111010
  Serious: Yes (Other)
  Sender: FDA-Public Use
  Company Number: FR-NOVOPROD-326427

PATIENT
  Age: 46 Year
  Sex: Female
  Weight: 135 kg

DRUGS (1)
  1. VICTOZA [Suspect]
     Indication: PRODUCT USED FOR UNKNOWN INDICATION
     Dosage: UNK
     Route: 065
     Dates: start: 20101130, end: 20110201

REACTIONS (3)
  - COUGH [None]
  - BRONCHITIS [None]
  - DYSPNOEA [None]
